FAERS Safety Report 5244792-0 (Version None)
Quarter: 2007Q1

REPORT INFORMATION
  Report Type: 
  Country: None (occurrence: None)
  Receive Date: 20070216
  Receipt Date: 20070206
  Transmission Date: 20070707
  Serious: Yes (Death, Life-Threatening)
  Sender: FDA-Public Use
  Company Number: 2007SP000881

PATIENT
  Age: 38 Year
  Sex: Male
  Weight: 58 kg

DRUGS (4)
  1. VIRAFERONPEG [Suspect]
     Indication: HEPATITIS C
     Dosage: 1.5 MG/KG; QW; SC
     Route: 058
  2. REBETOL [Suspect]
     Indication: HEPATITIS C
     Dosage: 800 MG; QD; PO
     Route: 048
  3. HALDOL SOLUTAB [Suspect]
     Indication: SCHIZOPHRENIA
     Dosage: ; IM
     Route: 030
     Dates: start: 20030101
  4. SOLIAN (AMISULPRIDE) [Suspect]
     Indication: SCHIZOPHRENIA
     Dosage: PO
     Route: 048
     Dates: start: 20030101

REACTIONS (3)
  - CARDIAC ARREST [None]
  - MALAISE [None]
  - MYOCARDIAL INFARCTION [None]
